FAERS Safety Report 6536554-9 (Version None)
Quarter: 2010Q1

REPORT INFORMATION
  Report Type: 
  Country: None (occurrence: None)
  Receive Date: 20100113
  Receipt Date: 20100108
  Transmission Date: 20100710
  Serious: Yes (Other)
  Sender: FDA-Public Use
  Company Number: US-RB-000416-10

PATIENT
  Age: 44 Year
  Sex: Male

DRUGS (2)
  1. SUBOXONE [Suspect]
     Route: 060
     Dates: start: 20081101, end: 20100105
  2. SEROQUEL [Suspect]
     Indication: INSOMNIA
     Dosage: DOSING DETAILS UNKNOWN
     Route: 048
     Dates: end: 20091101

REACTIONS (2)
  - INSOMNIA [None]
  - SUICIDAL IDEATION [None]
